FAERS Safety Report 20763831 (Version 1)
Quarter: 2022Q2

REPORT INFORMATION
  Report Type: Spontaneous
  Country: US (occurrence: US)
  Receive Date: 20220428
  Receipt Date: 20220428
  Transmission Date: 20220720
  Serious: No
  Sender: FDA-Public Use
  Company Number: US-PFIZER INC-202200021375

PATIENT
  Age: 61 Year
  Sex: Female
  Weight: 68.481 kg

DRUGS (4)
  1. XELJANZ XR [Suspect]
     Active Substance: TOFACITINIB CITRATE
     Indication: Rheumatoid arthritis
     Dosage: 11 MG, 1X/DAY
     Route: 048
  2. VITAMIN D NOS [Concomitant]
     Active Substance: VITAMIN D NOS
     Dosage: UNK, 1X/DAY
     Route: 048
  3. ESTRADIOL [Concomitant]
     Active Substance: ESTRADIOL
     Dosage: 1 MG
     Route: 048
  4. IBUPROFEN [Concomitant]
     Active Substance: IBUPROFEN
     Dosage: 200 MG, AS NEEDED
     Route: 048

REACTIONS (12)
  - Blood cholesterol increased [Unknown]
  - Fatigue [Unknown]
  - Nasal dryness [Unknown]
  - Night sweats [Unknown]
  - Nocturia [Unknown]
  - Joint stiffness [Unknown]
  - Temperature intolerance [Unknown]
  - Thirst [Unknown]
  - Hot flush [Unknown]
  - Amnesia [Unknown]
  - Pain [Unknown]
  - Low density lipoprotein increased [Unknown]
